FAERS Safety Report 9687977 (Version 1)
Quarter: 2013Q4

REPORT INFORMATION
  Report Type: Report from Study
  Country: GB (occurrence: GB)
  Receive Date: 20131114
  Receipt Date: 20131114
  Transmission Date: 20140711
  Serious: Yes (Hospitalization)
  Sender: FDA-Public Use
  Company Number: PHHY2013GB128063

PATIENT
  Age: 34 Year
  Sex: Female

DRUGS (3)
  1. ZOLEDRONIC ACID [Suspect]
     Indication: BREAST CANCER METASTATIC
     Dosage: 4 MG, 1 MONTH INTERVAL
     Route: 042
     Dates: start: 20071015, end: 20080305
  2. DOCETAXEL [Suspect]
     Dosage: 126 MG, UNK
     Route: 042
     Dates: start: 20080123
  3. AVASTIN [Suspect]
     Dosage: 967 MG, UNK
     Route: 042
     Dates: start: 20080123

REACTIONS (1)
  - Tooth abscess [Recovered/Resolved with Sequelae]
